FAERS Safety Report 9508225 (Version 2)
Quarter: 2013Q3

REPORT INFORMATION
  Report Type: Spontaneous
  Country: US (occurrence: US)
  Receive Date: 20130909
  Receipt Date: 20130926
  Transmission Date: 20140515
  Serious: No
  Sender: FDA-Public Use
  Company Number: US-PFIZER INC-2013257995

PATIENT
  Age: 57 Year
  Sex: Male
  Weight: 129 kg

DRUGS (1)
  1. CHANTIX [Suspect]
     Indication: SMOKING CESSATION THERAPY
     Dosage: 0.5 MG, 1X/DAY
     Route: 048
     Dates: start: 2011, end: 2011

REACTIONS (3)
  - Blood potassium decreased [Unknown]
  - Irritability [Unknown]
  - Drug ineffective [Unknown]
